FAERS Safety Report 9620062 (Version 1)
Quarter: 2013Q4

REPORT INFORMATION
  Report Type: Spontaneous
  Country: GB (occurrence: GB)
  Receive Date: 20131014
  Receipt Date: 20131014
  Transmission Date: 20140711
  Serious: Yes (Hospitalization, Disabling, Other)
  Sender: FDA-Public Use
  Company Number: GB-MYLANLABS-2013S1022110

PATIENT
  Age: 64 Year
  Sex: Female

DRUGS (1)
  1. INDAPAMIDE [Suspect]
     Indication: HYPERTENSION
     Route: 048
     Dates: start: 20120109, end: 20120224

REACTIONS (3)
  - Cerebral haemangioma [Unknown]
  - Hypercalcaemia [Recovering/Resolving]
  - Malaise [Recovering/Resolving]
